FAERS Safety Report 6582346-4 (Version None)
Quarter: 2010Q1

REPORT INFORMATION
  Report Type: 
  Country: None (occurrence: None)
  Receive Date: 20100212
  Receipt Date: 20100212
  Transmission Date: 20100710
  Serious: No
  Sender: FDA-Public Use
  Company Number: None

PATIENT
  Age: 70 Year
  Sex: Male

DRUGS (1)
  1. PACLITAXEL [Suspect]
     Dosage: 100 MG ONCE IV
     Route: 042
     Dates: start: 20091229, end: 20091230

REACTIONS (3)
  - AGITATION [None]
  - DYSPNOEA [None]
  - FLUSHING [None]
